FAERS Safety Report 16971300 (Version 1)
Quarter: 2019Q4

REPORT INFORMATION
  Report Type: Spontaneous
  Country: US (occurrence: US)
  Receive Date: 20191029
  Receipt Date: 20191029
  Transmission Date: 20200122
  Serious: No
  Sender: FDA-Public Use
  Company Number: US-PERRIGO-19US012123

PATIENT
  Age: 55 Year
  Sex: Female

DRUGS (2)
  1. FLUOCINOLONE ACETONIDE. [Suspect]
     Active Substance: FLUOCINOLONE ACETONIDE
     Indication: DERMATITIS
     Dosage: 5 DROPS, BID
     Route: 050
     Dates: start: 20190926, end: 20190928
  2. VITAMIN D NOS [Concomitant]
     Active Substance: VITAMIN D NOS
     Indication: ROUTINE HEALTH MAINTENANCE
     Dosage: UNK
     Route: 065
     Dates: start: 2012

REACTIONS (6)
  - Trismus [Recovering/Resolving]
  - Hypoacusis [Not Recovered/Not Resolved]
  - Ear pain [Recovering/Resolving]
  - Pain in jaw [Recovering/Resolving]
  - Tinnitus [Not Recovered/Not Resolved]
  - Inappropriate schedule of product administration [Recovered/Resolved]

NARRATIVE: CASE EVENT DATE: 2019
